FAERS Safety Report 24671432 (Version 1)
Quarter: 2024Q4

REPORT INFORMATION
  Report Type: Spontaneous
  Country: US (occurrence: None)
  Receive Date: 20241127
  Receipt Date: 20241127
  Transmission Date: 20250115
  Serious: Yes (Other)
  Sender: Public
  Company Number: None

PATIENT
  Age: 30 Year
  Sex: Female

DRUGS (9)
  1. KESIMPTA [Suspect]
     Active Substance: OFATUMUMAB
     Indication: Multiple sclerosis
     Dosage: FREQUENCY : MONTHLY;?
     Route: 058
     Dates: start: 20241114, end: 20241127
  2. Albuterol HFA inhaler 90mcg [Concomitant]
  3. CALCIUM CARBONATE\CHOLECALCIFEROL [Concomitant]
     Active Substance: CALCIUM CARBONATE\CHOLECALCIFEROL
  4. FEXOFENADINE HYDROCHLORIDE [Concomitant]
     Active Substance: FEXOFENADINE HYDROCHLORIDE
  5. Fluconazole 150mg tablet [Concomitant]
  6. Magnesium Oxide 250mg [Concomitant]
  7. VITAMINS [Concomitant]
     Active Substance: VITAMINS
  8. IBUPROFEN [Concomitant]
     Active Substance: IBUPROFEN
  9. Phexxi 1.8-0.4% vaginal gel [Concomitant]

REACTIONS (2)
  - Injection site nerve damage [None]
  - Injection site haematoma [None]

NARRATIVE: CASE EVENT DATE: 20241127
